FAERS Safety Report 6311159-3 (Version None)
Quarter: 2009Q3

REPORT INFORMATION
  Report Type: 
  Country: None (occurrence: None)
  Receive Date: 20090817
  Receipt Date: 20090806
  Transmission Date: 20100115
  Serious: Yes (Hospitalization)
  Sender: FDA-Public Use
  Company Number: FR-AMGEN-US359507

PATIENT
  Sex: Female

DRUGS (4)
  1. ENBREL [Suspect]
     Indication: RHEUMATOID ARTHRITIS
     Dosage: 50 MG ONCE WEEKLY FROM AN UNKNOWN DATE TO 31-MAY-2009; THERAPY RESUMED IN JUN-2009
     Route: 058
  2. PRETERAX [Suspect]
     Indication: HYPERTENSION
     Dosage: UNKNOWN
     Route: 048
     Dates: start: 20090415
  3. LEVOTHYROX [Concomitant]
     Indication: BASEDOW'S DISEASE
     Dosage: UNKNOWN
     Route: 048
  4. DOLIPRANE [Concomitant]
     Indication: PAIN
     Dosage: UNKNOWN
     Route: 048

REACTIONS (1)
  - IDIOPATHIC THROMBOCYTOPENIC PURPURA [None]
